FAERS Safety Report 8805671 (Version 2)
Quarter: 2015Q3

REPORT INFORMATION
  Report Type: Report from Study
  Country: US (occurrence: US)
  Receive Date: 20120924
  Receipt Date: 20150701
  Transmission Date: 20151125
  Serious: Yes (Death)
  Sender: FDA-Public Use
  Company Number: US-ROCHE-1125648

PATIENT
  Sex: Male

DRUGS (32)
  1. CISPLATIN. [Concomitant]
     Active Substance: CISPLATIN
  2. KLONOPIN [Concomitant]
     Active Substance: CLONAZEPAM
     Route: 065
  3. ZITHROMAX [Concomitant]
     Active Substance: AZITHROMYCIN DIHYDRATE
  4. AVASTIN [Suspect]
     Active Substance: BEVACIZUMAB
     Indication: HEPATOCELLULAR CARCINOMA
  5. OXALIPLATIN. [Concomitant]
     Active Substance: OXALIPLATIN
  6. DOXORUBICIN [Concomitant]
     Active Substance: DOXORUBICIN
  7. ZOMETA [Concomitant]
     Active Substance: ZOLEDRONIC ACID
     Route: 042
  8. LEVAQUIN [Concomitant]
     Active Substance: LEVOFLOXACIN
  9. LOVENOX [Concomitant]
     Active Substance: ENOXAPARIN SODIUM
     Route: 058
  10. SENNA [Concomitant]
     Active Substance: SENNA LEAF\SENNOSIDES\SENNOSIDES A AND B
     Route: 048
  11. SEPTRA [Concomitant]
     Active Substance: SULFAMETHOXAZOLE\TRIMETHOPRIM
  12. DIFLUCAN [Concomitant]
     Active Substance: FLUCONAZOLE
  13. VICODIN [Concomitant]
     Active Substance: ACETAMINOPHEN\HYDROCODONE BITARTRATE
  14. 5-FLUOROURACIL [Concomitant]
     Active Substance: FLUOROURACIL
  15. LYRICA [Concomitant]
     Active Substance: PREGABALIN
  16. FOLINIC ACID [Concomitant]
     Active Substance: LEUCOVORIN
  17. GEMCITABINE [Concomitant]
     Active Substance: GEMCITABINE\GEMCITABINE HYDROCHLORIDE
  18. PROTONIX (UNITED STATES) [Concomitant]
     Route: 048
  19. DECADRON [Concomitant]
     Active Substance: DEXAMETHASONE
  20. IRINOTECAN [Concomitant]
     Active Substance: IRINOTECAN
  21. MORPHINE [Concomitant]
     Active Substance: MORPHINE
     Route: 065
  22. FLOMAX (UNITED STATES) [Concomitant]
     Route: 065
  23. FAMVIR (UNITED STATES) [Concomitant]
  24. AVASTIN [Suspect]
     Active Substance: BEVACIZUMAB
     Indication: HEPATIC CANCER
     Route: 042
  25. DEXAMETHASONE. [Concomitant]
     Active Substance: DEXAMETHASONE
     Route: 048
  26. DEXTROL [Concomitant]
     Route: 048
  27. AMOXICILLIN. [Concomitant]
     Active Substance: AMOXICILLIN
  28. NASONEX [Concomitant]
     Active Substance: MOMETASONE FUROATE
  29. CIPROFLOXACIN. [Concomitant]
     Active Substance: CIPROFLOXACIN
     Route: 048
  30. AVASTIN [Suspect]
     Active Substance: BEVACIZUMAB
     Indication: CHOLANGIOCARCINOMA
  31. LASIX [Concomitant]
     Active Substance: FUROSEMIDE
     Route: 048
  32. OMNICEF (UNITED STATES) [Concomitant]

REACTIONS (35)
  - Oral pain [Unknown]
  - Eye pruritus [Unknown]
  - Ascites [Unknown]
  - Oedema peripheral [Unknown]
  - Abdominal tenderness [Unknown]
  - Contusion [Unknown]
  - Gallbladder enlargement [Unknown]
  - Splenomegaly [Unknown]
  - Mucosal inflammation [Unknown]
  - Rhinorrhoea [Unknown]
  - Constipation [Unknown]
  - Stomatitis [Unknown]
  - Abdominal distension [Unknown]
  - Abdominal pain [Unknown]
  - Pyrexia [Unknown]
  - Throat irritation [Unknown]
  - Hypoaesthesia [Unknown]
  - Off label use [Unknown]
  - Diarrhoea [Unknown]
  - Thrombocytopenia [Unknown]
  - Pancreatic cyst [Unknown]
  - Sinusitis [Unknown]
  - Chest injury [Unknown]
  - Urinary tract infection [Unknown]
  - Eye swelling [Unknown]
  - Lung infiltration [Unknown]
  - Effusion [Unknown]
  - Death [Fatal]
  - Embolism [Unknown]
  - Skin exfoliation [Unknown]
  - Arteriosclerosis coronary artery [Unknown]
  - Disease progression [Unknown]
  - Diaphragmatic spasm [Unknown]
  - Bladder outlet obstruction [Unknown]
  - Bone scan abnormal [Unknown]
